FAERS Safety Report 8543014-2 (Version None)
Quarter: 2012Q3

REPORT INFORMATION
  Report Type: 
  Country: None (occurrence: None)
  Receive Date: 20120727
  Receipt Date: 20120717
  Transmission Date: 20120928
  Serious: Yes (Other)
  Sender: FDA-Public Use
  Company Number: FR-JNJFOC-20120708406

PATIENT
  Age: 38 Year
  Sex: Female

DRUGS (2)
  1. ENBREL [Suspect]
     Indication: SPONDYLOARTHROPATHY
     Route: 058
     Dates: start: 20100201, end: 20100201
  2. REMICADE [Suspect]
     Indication: SPONDYLOARTHROPATHY
     Route: 042
     Dates: start: 20100916, end: 20100930

REACTIONS (3)
  - CUTANEOUS LUPUS ERYTHEMATOSUS [None]
  - ANTINUCLEAR ANTIBODY POSITIVE [None]
  - HERPES VIRUS INFECTION [None]
